FAERS Safety Report 7779940-1 (Version None)
Quarter: 2011Q3

REPORT INFORMATION
  Report Type: 
  Country: None (occurrence: None)
  Receive Date: 20110927
  Receipt Date: 20110923
  Transmission Date: 20111222
  Serious: Yes (Hospitalization)
  Sender: FDA-Public Use
  Company Number: DE-BRISTOL-MYERS SQUIBB COMPANY-16055659

PATIENT
  Age: 55 Year
  Sex: Male
  Weight: 79 kg

DRUGS (3)
  1. CISPLATIN [Suspect]
     Indication: NON-SMALL CELL LUNG CANCER
     Route: 042
     Dates: start: 20110831, end: 20110831
  2. GEMCITABINE [Suspect]
     Indication: NON-SMALL CELL LUNG CANCER
     Dosage: FREQ: 1 + DAY8 OF EACH 3WEEK CYCLE,31AUG11-31AUG11,21SEP11-ONG,INT : 31AUG11,RESD:21SEP11
     Route: 042
     Dates: start: 20110831
  3. CETUXIMAB [Suspect]
     Indication: NON-SMALL CELL LUNG CANCER
     Dosage: FORMU:5MG/ML,07SEP11 CYCLE 1 D8,31AUG11-31AUG11,21SEP11-ONG;MG/M2 1/WK,INT : 31AUG11,RESD:21SEP11
     Route: 042
     Dates: start: 20110831

REACTIONS (1)
  - PERIPHERAL ARTERIAL OCCLUSIVE DISEASE [None]
